FAERS Safety Report 5037464-9 (Version None)
Quarter: 2006Q2

REPORT INFORMATION
  Report Type: 
  Country: None (occurrence: None)
  Receive Date: 20060628
  Receipt Date: 20050808
  Transmission Date: 20061013
  Serious: No
  Sender: FDA-Public Use
  Company Number: US-GLAXOSMITHKLINE-A0569264A

PATIENT
  Age: 77 Year
  Sex: Female

DRUGS (10)
  1. ALBUTEROL [Suspect]
     Indication: ASTHMA
     Dosage: 2PUFF AS REQUIRED
     Route: 055
  2. FLOVENT [Suspect]
     Indication: ASTHMA
     Dosage: 2PUFF TWICE PER DAY
     Route: 055
     Dates: start: 20050401
  3. SINGULAIR [Concomitant]
  4. PREVACID [Concomitant]
  5. LEVOTHYROXINE SODIUM [Concomitant]
  6. TAMBOCOR [Concomitant]
  7. LORAZEPAM [Concomitant]
  8. ALBUTEROL [Concomitant]
  9. COUMADIN [Concomitant]
     Route: 065
  10. LIPITOR [Concomitant]
     Route: 065

REACTIONS (8)
  - CHEILITIS [None]
  - DRUG INEFFECTIVE [None]
  - DYSPNOEA [None]
  - FEELING JITTERY [None]
  - FLAT AFFECT [None]
  - INSOMNIA [None]
  - LIP PAIN [None]
  - ORAL PAIN [None]
